FAERS Safety Report 7810402-9 (Version None)
Quarter: 2011Q4

REPORT INFORMATION
  Report Type: 
  Country: None (occurrence: None)
  Receive Date: 20111012
  Receipt Date: 20110928
  Transmission Date: 20120403
  Serious: Yes (Death, Other)
  Sender: FDA-Public Use
  Company Number: CO-ROCHE-1000562

PATIENT
  Age: 42 Year
  Sex: Male

DRUGS (4)
  1. METHYLPREDNISOLONE [Suspect]
     Indication: IMMUNOSUPPRESSION
  2. CYCLOSPORINE [Suspect]
     Indication: IMMUNOSUPPRESSION
  3. GANCICLOVIR [Concomitant]
  4. MYCOPHENOLATE MOFETIL [Suspect]
     Indication: IMMUNOSUPPRESSION
     Route: 065

REACTIONS (5)
  - DISSEMINATED INTRAVASCULAR COAGULATION [None]
  - VISCERAL LEISHMANIASIS [None]
  - THROMBOCYTOPENIA [None]
  - SEPSIS [None]
  - LEUKOPENIA [None]
